FAERS Safety Report 7010363-9 (Version None)
Quarter: 2010Q3

REPORT INFORMATION
  Report Type: 
  Country: None (occurrence: None)
  Receive Date: 20100923
  Receipt Date: 20100914
  Transmission Date: 20110219
  Serious: Yes (Other)
  Sender: FDA-Public Use
  Company Number: BR-PFIZER INC-2010116456

PATIENT
  Age: 49 Year
  Sex: Female
  Weight: 57 kg

DRUGS (4)
  1. CHAMPIX [Suspect]
     Indication: TOBACCO USER
     Dosage: UNK
     Route: 048
     Dates: start: 20100901, end: 20100901
  2. CHAMPIX [Suspect]
     Dosage: 1 MG, 2X/DAY, EVERY 12 HOURS
     Route: 048
     Dates: start: 20100901
  3. ADVIL LIQUI-GELS [Concomitant]
     Indication: MUSCLE RELAXANT THERAPY
     Dosage: UNK
  4. DORFLEX [Concomitant]
     Indication: MUSCLE RELAXANT THERAPY
     Dosage: UNK

REACTIONS (7)
  - ABDOMINAL DISTENSION [None]
  - CHILLS [None]
  - DYSPEPSIA [None]
  - FEELING HOT [None]
  - INSOMNIA [None]
  - PERIPHERAL COLDNESS [None]
  - SLEEP DISORDER [None]
